FAERS Safety Report 16794480 (Version 1)
Quarter: 2019Q3

REPORT INFORMATION
  Report Type: Spontaneous
  Country: IR (occurrence: IR)
  Receive Date: 20190911
  Receipt Date: 20190911
  Transmission Date: 20191005
  Serious: Yes (Other)
  Sender: FDA-Public Use
  Company Number: IR-MACLEODS PHARMACEUTICALS US LTD-MAC2019022877

PATIENT

DRUGS (1)
  1. TRIAMCINOLONE [Suspect]
     Active Substance: TRIAMCINOLONE
     Indication: GRANULOMA ANNULARE
     Dosage: 2 DOSAGE FORM, INJECTION
     Route: 026

REACTIONS (2)
  - Cutaneous leishmaniasis [Recovered/Resolved]
  - Infection reactivation [Recovered/Resolved]
